FAERS Safety Report 18169319 (Version 3)
Quarter: 2021Q1

REPORT INFORMATION
  Report Type: Spontaneous
  Country: CA (occurrence: CA)
  Receive Date: 20200819
  Receipt Date: 20210225
  Transmission Date: 20210419
  Serious: Yes (Other)
  Sender: FDA-Public Use
  Company Number: CA-PFIZER INC-2020314759

PATIENT
  Age: 55 Year
  Sex: Male

DRUGS (6)
  1. ATORVASTATIN CALCIUM. [Interacting]
     Active Substance: ATORVASTATIN CALCIUM
     Dosage: UNK (ON DAY 16)
  2. CIPROFLOXACIN HCL [Interacting]
     Active Substance: CIPROFLOXACIN HYDROCHLORIDE
     Dosage: UNK (ON DAY 18)
  3. AMIODARONE [Interacting]
     Active Substance: AMIODARONE
     Indication: ATRIAL FIBRILLATION
     Dosage: 400 MG, 3X/DAY
     Route: 048
  4. CIPROFLOXACIN HCL [Interacting]
     Active Substance: CIPROFLOXACIN HYDROCHLORIDE
     Indication: PNEUMONIA BACTERIAL
     Dosage: 750 MG, 2X/DAY
     Route: 048
  5. ATORVASTATIN CALCIUM. [Suspect]
     Active Substance: ATORVASTATIN CALCIUM
     Indication: ACUTE MYOCARDIAL INFARCTION
     Dosage: 80 MG, DAILY (DAY 1)
  6. AMIODARONE [Interacting]
     Active Substance: AMIODARONE
     Dosage: UNK (ON DAY 19)

REACTIONS (2)
  - Drug interaction [Unknown]
  - Rhabdomyolysis [Unknown]
